FAERS Safety Report 5808785-4 (Version None)
Quarter: 2008Q3

REPORT INFORMATION
  Report Type: 
  Country: None (occurrence: None)
  Receive Date: 20080714
  Receipt Date: 20080707
  Transmission Date: 20090109
  Serious: Yes (Congenital Anomaly)
  Sender: FDA-Public Use
  Company Number: A0687216A

PATIENT
  Sex: Female

DRUGS (6)
  1. PAXIL [Suspect]
     Dosage: 20MG PER DAY
     Dates: start: 20000901, end: 20010601
  2. VITAMIN TAB [Concomitant]
  3. RANITIDINE HCL [Concomitant]
  4. IRON SUPPLEMENT [Concomitant]
  5. REGLAN [Concomitant]
  6. ERYTHROMYCIN [Concomitant]

REACTIONS (2)
  - ATRIAL SEPTAL DEFECT [None]
  - DRUG EXPOSURE DURING PREGNANCY [None]
